FAERS Safety Report 24996438 (Version 1)
Quarter: 2025Q1

REPORT INFORMATION
  Report Type: Spontaneous
  Country: AU (occurrence: AU)
  Receive Date: 20250221
  Receipt Date: 20250221
  Transmission Date: 20250409
  Serious: Yes (Other)
  Sender: BAXTER
  Company Number: AU-BAXTER-2025BAX011535

PATIENT
  Sex: Female

DRUGS (12)
  1. AMINO ACIDS, SOURCE UNSPECIFIED [Suspect]
     Active Substance: AMINO ACIDS, SOURCE UNSPECIFIED
     Indication: Parenteral nutrition
     Route: 065
  2. DEXTROSE [Suspect]
     Active Substance: DEXTROSE MONOHYDRATE
     Indication: Parenteral nutrition
     Route: 065
  3. WATER FOR INJECTION [Suspect]
     Active Substance: WATER
     Indication: Parenteral nutrition
     Route: 065
  4. UNSPECIFIED INGREDIENT [Suspect]
     Active Substance: UNSPECIFIED INGREDIENT
     Indication: Parenteral nutrition
     Route: 065
  5. CALCIUM GLUCONATE [Suspect]
     Active Substance: CALCIUM GLUCONATE
     Indication: Parenteral nutrition
     Route: 065
  6. MAGNESIUM SULFATE [Suspect]
     Active Substance: MAGNESIUM SULFATE
     Indication: Parenteral nutrition
     Route: 065
  7. POTASSIUM ACETATE [Suspect]
     Active Substance: POTASSIUM ACETATE
     Indication: Parenteral nutrition
     Route: 065
  8. SODIUM ACETATE [Suspect]
     Active Substance: SODIUM ACETATE
     Indication: Parenteral nutrition
     Route: 065
  9. SODIUM CHLORIDE [Suspect]
     Active Substance: SODIUM CHLORIDE
     Indication: Parenteral nutrition
     Route: 065
  10. HEPARIN SODIUM [Suspect]
     Active Substance: HEPARIN SODIUM
     Indication: Parenteral nutrition
     Route: 065
  11. ZINC [Suspect]
     Active Substance: ZINC
     Indication: Parenteral nutrition
     Route: 065
  12. UNSPECIFIED INGREDIENT [Suspect]
     Active Substance: UNSPECIFIED INGREDIENT
     Indication: Parenteral nutrition
     Route: 065

REACTIONS (1)
  - Blood potassium increased [Recovered/Resolved]
